FAERS Safety Report 7767149-7 (Version None)
Quarter: 2011Q3

REPORT INFORMATION
  Report Type: 
  Country: None (occurrence: None)
  Receive Date: 20110922
  Receipt Date: 20110209
  Transmission Date: 20111222
  Serious: No
  Sender: FDA-Public Use
  Company Number: US-ASTRAZENECA-2011SE07897

PATIENT
  Age: 55 Year
  Sex: Female
  Weight: 81.6 kg

DRUGS (4)
  1. SEROQUEL [Suspect]
     Indication: INSOMNIA
     Route: 048
     Dates: start: 20101101
  2. DIAZEPAM [Concomitant]
  3. CRESTOR [Concomitant]
     Route: 048
  4. SEROQUEL [Suspect]
     Route: 048

REACTIONS (8)
  - PANIC ATTACK [None]
  - DRUG DOSE OMISSION [None]
  - NO ADVERSE EVENT [None]
  - VOMITING [None]
  - DRUG INEFFECTIVE FOR UNAPPROVED INDICATION [None]
  - TREMOR [None]
  - SOMNOLENCE [None]
  - THERAPEUTIC RESPONSE UNEXPECTED [None]
